FAERS Safety Report 12622298 (Version 1)
Quarter: 2016Q3

REPORT INFORMATION
  Report Type: Spontaneous
  Country: GB (occurrence: GB)
  Receive Date: 20160804
  Receipt Date: 20160804
  Transmission Date: 20161109
  Serious: Yes (Hospitalization, Other)
  Sender: FDA-Public Use
  Company Number: GB-GLAXOSMITHKLINE-GB2016111828

PATIENT
  Age: 81 Year
  Sex: Female

DRUGS (2)
  1. ACYCLOVIR. [Suspect]
     Active Substance: ACYCLOVIR
     Indication: HERPES ZOSTER
     Dosage: UNK
     Route: 065
     Dates: start: 20160204
  2. RAMIPRIL. [Concomitant]
     Active Substance: RAMIPRIL
     Indication: BLOOD PRESSURE ABNORMAL
     Dosage: 2.5 MG, DAILY
     Route: 065

REACTIONS (5)
  - Dyspnoea exertional [Unknown]
  - Fatigue [Unknown]
  - Small intestinal haemorrhage [Unknown]
  - Faeces discoloured [Unknown]
  - Pallor [Unknown]

NARRATIVE: CASE EVENT DATE: 20160215
